FAERS Safety Report 19827428 (Version 2)
Quarter: 2021Q3

REPORT INFORMATION
  Report Type: Report from Study
  Country: US (occurrence: US)
  Receive Date: 20210914
  Receipt Date: 20210929
  Transmission Date: 20211014
  Serious: Yes (Hospitalization)
  Sender: FDA-Public Use
  Company Number: US-GLAXOSMITHKLINE-US2021GSK183650

PATIENT
  Age: 71 Year
  Sex: Female

DRUGS (5)
  1. NIRAPARIB [Suspect]
     Active Substance: NIRAPARIB
     Indication: SMALL CELL LUNG CANCER
     Dosage: UNK
     Route: 048
  2. AMIODARONE [Suspect]
     Active Substance: AMIODARONE
     Dosage: UNK
  3. DOSTARLIMAB [Suspect]
     Active Substance: DOSTARLIMAB
     Indication: NEUROENDOCRINE CARCINOMA
  4. NIRAPARIB [Suspect]
     Active Substance: NIRAPARIB
     Indication: NEUROENDOCRINE CARCINOMA
  5. DOSTARLIMAB [Suspect]
     Active Substance: DOSTARLIMAB
     Indication: SMALL CELL LUNG CANCER
     Dosage: UNK
     Route: 042

REACTIONS (3)
  - Atrial fibrillation [Recovered/Resolved]
  - Hallucination [Recovered/Resolved]
  - Dyspnoea [Recovered/Resolved]

NARRATIVE: CASE EVENT DATE: 20210827
